FAERS Safety Report 23107489 (Version 1)
Quarter: 2023Q4

REPORT INFORMATION
  Report Type: Spontaneous
  Country: ES (occurrence: ES)
  Receive Date: 20231026
  Receipt Date: 20231026
  Transmission Date: 20240109
  Serious: Yes (Hospitalization)
  Sender: FDA-Public Use
  Company Number: None

PATIENT
  Age: 86 Year
  Sex: Female

DRUGS (4)
  1. ENALAPRIL MALEATE [Interacting]
     Active Substance: ENALAPRIL MALEATE
     Indication: Product used for unknown indication
     Dosage: ENALAPRIL MALEATO (2142MA)
     Dates: start: 2018
  2. OMEPRAZOLE [Interacting]
     Active Substance: OMEPRAZOLE
     Indication: Product used for unknown indication
     Dosage: OMEPRAZOL (2141A)
     Dates: start: 20230406
  3. CITALOPRAM [Interacting]
     Active Substance: CITALOPRAM HYDROBROMIDE
     Indication: Mixed anxiety and depressive disorder
     Dosage: CITALOPRAM (2655A)
     Dates: start: 2018, end: 20230724
  4. EPLERENONE [Interacting]
     Active Substance: EPLERENONE
     Indication: Product used for unknown indication
     Dosage: EPLERENONA (2924A)
     Dates: start: 20230406, end: 20230724

REACTIONS (2)
  - Hyponatraemia [Recovered/Resolved]
  - Drug interaction [Unknown]

NARRATIVE: CASE EVENT DATE: 20230724
